FAERS Safety Report 8284965-6 (Version None)
Quarter: 2012Q2

REPORT INFORMATION
  Report Type: 
  Country: None (occurrence: None)
  Receive Date: 20120413
  Receipt Date: 20110610
  Transmission Date: 20120825
  Serious: No
  Sender: FDA-Public Use
  Company Number: US-ASTRAZENECA-2009UW08240

PATIENT
  Age: 65 Year
  Sex: Female

DRUGS (1)
  1. NEXIUM [Suspect]
     Indication: GASTRIC ULCER
     Route: 048
     Dates: start: 20080502, end: 20090325

REACTIONS (7)
  - CONDITION AGGRAVATED [None]
  - GASTRIC ULCER [None]
  - DYSPEPSIA [None]
  - ABDOMINAL PAIN UPPER [None]
  - DYSGEUSIA [None]
  - CHEST PAIN [None]
  - DRUG DOSE OMISSION [None]
